FAERS Safety Report 7766901-1 (Version None)
Quarter: 2011Q3

REPORT INFORMATION
  Report Type: 
  Country: None (occurrence: None)
  Receive Date: 20110922
  Receipt Date: 20110916
  Transmission Date: 20111222
  Serious: Yes (Other)
  Sender: FDA-Public Use
  Company Number: US-PFIZER INC-2011220484

PATIENT
  Sex: Female
  Weight: 62.585 kg

DRUGS (8)
  1. HYDROCODONE BITARTRATE AND ACETAMINOPHEN [Concomitant]
     Indication: PAIN
     Dosage: 5/500 MG, 3X/DAY
     Route: 048
  2. NEXIUM [Concomitant]
     Indication: BARRETT'S OESOPHAGUS
     Dosage: 40 MG, DAILY
     Route: 048
  3. AMLODIPINE BESILATE [Concomitant]
     Indication: HYPERTENSION
     Dosage: 5 MG, DAILY
     Route: 048
  4. ASPIRIN [Concomitant]
     Indication: HYPERTENSION
     Dosage: 81 MG, EVERY OTHER DAY
     Route: 048
  5. NEURONTIN [Suspect]
     Indication: NEUROPATHY PERIPHERAL
     Dosage: 300MG AT LUNCH TIME AND 600MG AT BED TIME
     Route: 048
  6. VAGIFEM [Concomitant]
     Indication: HORMONE THERAPY
     Dosage: 3X/WEEK
     Route: 067
  7. BYSTOLIC [Concomitant]
     Indication: HYPERTENSION
     Dosage: 10 MG, DAILY
     Route: 048
  8. CENTRUM SILVER [Concomitant]
     Dosage: UNK
     Route: 048

REACTIONS (1)
  - TINNITUS [None]
